FAERS Safety Report 4660735-2 (Version None)
Quarter: 2005Q2

REPORT INFORMATION
  Report Type: 
  Country: None (occurrence: None)
  Receive Date: 20050511
  Receipt Date: 20050427
  Transmission Date: 20051028
  Serious: Yes (Death, Hospitalization)
  Sender: FDA-Public Use
  Company Number: 2005BI000569

PATIENT
  Age: 68 Year
  Sex: Female

DRUGS (13)
  1. AVONEX [Suspect]
     Indication: MULTIPLE SCLEROSIS
     Dosage: 30 UG; QW; IM
     Route: 030
     Dates: start: 19990301, end: 20030901
  2. AVONEX [Suspect]
     Indication: MULTIPLE SCLEROSIS
     Dosage: 30 UG;QW;IM
     Route: 030
     Dates: start: 20030901, end: 20041201
  3. TYLENOL (CAPLET) [Concomitant]
  4. ELAVIL [Concomitant]
  5. FILGRASTIM [Concomitant]
  6. LANSOPRAZOLE [Concomitant]
  7. LEVAQUIN [Concomitant]
  8. ATIVAN [Concomitant]
  9. REGLAN [Concomitant]
  10. LEVOPHED [Concomitant]
  11. DILANTIN [Concomitant]
  12. PHENERGAN [Concomitant]
  13. I.V. FLUIDS (NOS) [Concomitant]

REACTIONS (7)
  - ASTHENIA [None]
  - BACTERIAL SEPSIS [None]
  - DISSEMINATED INTRAVASCULAR COAGULATION [None]
  - GASTRIC ULCER [None]
  - GASTROINTESTINAL HAEMORRHAGE [None]
  - THROMBOCYTOPENIA [None]
  - URINARY TRACT INFECTION [None]
